FAERS Safety Report 10615120 (Version 5)
Quarter: 2016Q1

REPORT INFORMATION
  Report Type: Report from Study
  Country: BR (occurrence: BR)
  Receive Date: 20141201
  Receipt Date: 20160217
  Transmission Date: 20160525
  Serious: Yes (Hospitalization, Other)
  Sender: FDA-Public Use
  Company Number: PHHY2014BR154297

PATIENT
  Sex: Female
  Weight: 78 kg

DRUGS (7)
  1. TEOLONG [Concomitant]
     Indication: PRODUCT USED FOR UNKNOWN INDICATION
     Dosage: 1 DF, BID
     Route: 048
  2. SANDOSTATIN LAR DEPOT [Suspect]
     Active Substance: OCTREOTIDE ACETATE
     Indication: COLON CANCER
     Dosage: 1 DF (20 MG), EVERY 21 DAYS
     Route: 030
     Dates: start: 2002
  3. SANDOSTATIN LAR DEPOT [Suspect]
     Active Substance: OCTREOTIDE ACETATE
     Indication: GASTROINTESTINAL NEOPLASM
  4. SANDOSTATIN LAR DEPOT [Suspect]
     Active Substance: OCTREOTIDE ACETATE
     Indication: LUNG NEOPLASM MALIGNANT
  5. OMEPRAZOLE//OMEPRAZOLE SODIUM [Concomitant]
     Indication: ABDOMINAL PAIN UPPER
     Dosage: 1 DF, QHS (BEFORE DINNER)
     Route: 048
  6. SPIRIVA [Concomitant]
     Active Substance: TIOTROPIUM BROMIDE MONOHYDRATE
     Indication: DYSPNOEA
     Dosage: 1 DF, QD
     Route: 055
  7. DIOVAN [Suspect]
     Active Substance: VALSARTAN
     Indication: HYPERTENSION
     Dosage: 1 DF, BID (1 TABLET/MORNING AND 1TABLET/NIGHT)
     Route: 048

REACTIONS (29)
  - Accident [Unknown]
  - Intestinal obstruction [Recovering/Resolving]
  - Constipation [Unknown]
  - Diabetes mellitus [Not Recovered/Not Resolved]
  - Nervousness [Unknown]
  - Diabetic blindness [Not Recovered/Not Resolved]
  - Diarrhoea [Unknown]
  - Product use issue [Unknown]
  - Fall [Unknown]
  - Lung neoplasm malignant [Recovering/Resolving]
  - Rib fracture [Unknown]
  - Swelling [Unknown]
  - Spinal fracture [Unknown]
  - Lung disorder [Not Recovered/Not Resolved]
  - Faecal vomiting [Recovering/Resolving]
  - Injection site pain [Recovering/Resolving]
  - Abdominal pain [Unknown]
  - Dizziness [Not Recovered/Not Resolved]
  - Inappropriate schedule of drug administration [Unknown]
  - Abdominal pain upper [Not Recovered/Not Resolved]
  - Abasia [Unknown]
  - Blood pressure increased [Recovered/Resolved]
  - Hepatic neoplasm [Unknown]
  - Colon cancer recurrent [Recovering/Resolving]
  - Malaise [Not Recovered/Not Resolved]
  - Asthenia [Unknown]
  - Vomiting [Unknown]
  - Pain [Unknown]
  - Hepatic pain [Unknown]

NARRATIVE: CASE EVENT DATE: 2002
